FAERS Safety Report 8319193-9 (Version None)
Quarter: 2012Q2

REPORT INFORMATION
  Report Type: 
  Country: None (occurrence: None)
  Receive Date: 20120427
  Receipt Date: 20120424
  Transmission Date: 20120825
  Serious: Yes (Disabling)
  Sender: FDA-Public Use
  Company Number: US-MERCK-1204USA03740

PATIENT
  Sex: Male

DRUGS (1)
  1. PROPECIA [Suspect]
     Route: 048

REACTIONS (8)
  - ERECTILE DYSFUNCTION [None]
  - ANXIETY [None]
  - DEPRESSION [None]
  - COGNITIVE DISORDER [None]
  - EJACULATION FAILURE [None]
  - EJACULATION DISORDER [None]
  - LIBIDO DECREASED [None]
  - SEXUAL DYSFUNCTION [None]
